FAERS Safety Report 8521485-5 (Version None)
Quarter: 2012Q3

REPORT INFORMATION
  Report Type: 
  Country: None (occurrence: None)
  Receive Date: 20120719
  Receipt Date: 20120704
  Transmission Date: 20120928
  Serious: Yes (Death, Hospitalization)
  Sender: FDA-Public Use
  Company Number: US-WATSON-2012-11976

PATIENT
  Age: 51 Year
  Sex: Male

DRUGS (4)
  1. CYCLOSPORINE [Suspect]
     Indication: CROHN'S DISEASE
     Dosage: UNK
     Route: 065
  2. PREDNISONE TAB [Suspect]
     Indication: CROHN'S DISEASE
     Dosage: UNK
     Route: 065
  3. MERCAPTOPURINE [Suspect]
     Indication: CROHN'S DISEASE
     Dosage: UNK
     Route: 065
  4. AMINOSALICYLIC ACID [Suspect]
     Indication: CROHN'S DISEASE
     Dosage: UNK
     Route: 065

REACTIONS (3)
  - CYTOMEGALOVIRUS INFECTION [None]
  - PNEUMONITIS [None]
  - LYMPHOPENIA [None]
